FAERS Safety Report 7550536-X (Version None)
Quarter: 2011Q2

REPORT INFORMATION
  Report Type: 
  Country: None (occurrence: None)
  Receive Date: 20110615
  Receipt Date: 20110602
  Transmission Date: 20111010
  Serious: Yes (Hospitalization)
  Sender: FDA-Public Use
  Company Number: US-CELGENEUS-163-21880-11041712

PATIENT
  Sex: Female
  Weight: 56.4 kg

DRUGS (27)
  1. REVLIMID [Suspect]
     Dosage: 15 MILLIGRAM
     Route: 048
  2. REVLIMID [Suspect]
  3. ZOMETA [Concomitant]
     Dosage: 4MG/5ML
     Route: 051
  4. JANTOVEN [Concomitant]
     Dosage: 2 MILLIGRAM
     Route: 048
  5. REVLIMID [Suspect]
     Indication: MULTIPLE MYELOMA
     Dosage: 15 MILLIGRAM
     Route: 048
     Dates: start: 20100712, end: 20100725
  6. GABAPENTIN [Concomitant]
     Dosage: 300 MG
     Route: 065
  7. LIDOCAINE-DIPHENHYD-AL-MAG-SIM [Concomitant]
     Dosage: 200-25-400-40MG/30ML
     Route: 048
  8. REVLIMID [Suspect]
     Dosage: 10 MILLIGRAM
     Route: 048
  9. METHYLPHENIDATE [Concomitant]
     Dosage: 5 MILLIGRAM
     Route: 048
  10. PROCHLORPERAZINE TAB [Concomitant]
     Dosage: 1-2
     Route: 048
  11. DEXAMETHASONE [Concomitant]
     Dosage: 20 MILLIGRAM
     Route: 048
     Dates: start: 20110319
  12. ONDANSETRON [Concomitant]
     Dosage: 8 MILLIGRAM
     Route: 048
  13. ACETAMINOPHEN [Concomitant]
     Dosage: 325 MILLIGRAM
     Route: 048
  14. SENNA-GEN [Concomitant]
     Dosage: 8.6 MILLIGRAM
     Route: 048
  15. LISINOPRIL [Concomitant]
     Dosage: 10 MILLIGRAM
     Route: 048
  16. OXYCONTIN [Concomitant]
     Dosage: 30 MILLIGRAM
     Route: 048
  17. KLOR-CON [Concomitant]
     Dosage: 20 MILLIEQUIVALENTS
     Route: 048
  18. OMEPRAZOLE [Concomitant]
     Dosage: 20 MILLIGRAM
     Route: 048
  19. LIDODERM [Concomitant]
     Dosage: 1 5% (700MG)
     Route: 061
  20. MIRALAX [Concomitant]
     Dosage: 17 GRAM
     Route: 048
  21. CARDIZEM [Concomitant]
     Dosage: 240 MILLIGRAM
     Route: 048
  22. VELCADE [Concomitant]
     Route: 065
     Dates: start: 20110319
  23. OXYCODONE HCL [Concomitant]
     Dosage: 5 MILLIGRAM
     Route: 048
  24. LASIX [Concomitant]
     Dosage: 20 MILLIGRAM
     Route: 048
  25. TOPROL-XL [Concomitant]
     Dosage: 200 MILLIGRAM
     Route: 048
  26. WARFARIN SODIUM [Concomitant]
     Indication: ATRIAL FIBRILLATION
     Route: 065
  27. VITAMIN B-12 [Concomitant]
     Route: 048

REACTIONS (2)
  - CARDIAC FAILURE CONGESTIVE [None]
  - CHOLECYSTITIS ACUTE [None]
